FAERS Safety Report 23552694 (Version 1)
Quarter: 2024Q1

REPORT INFORMATION
  Report Type: Spontaneous
  Country: US (occurrence: US)
  Receive Date: 20240222
  Receipt Date: 20240222
  Transmission Date: 20240409
  Serious: No
  Sender: FDA-Public Use
  Company Number: US-KOANAAP-SML-US-2024-00049

PATIENT

DRUGS (2)
  1. IMATINIB [Suspect]
     Active Substance: IMATINIB
     Indication: White blood cell count
     Route: 048
  2. BOSULIF [Suspect]
     Active Substance: BOSUTINIB MONOHYDRATE
     Indication: White blood cell count
     Dosage: TWO TABLETS BY MOUTH AFTER MAIN MEAL
     Route: 048

REACTIONS (3)
  - Product availability issue [Unknown]
  - Pain [Unknown]
  - Swelling [Unknown]
